FAERS Safety Report 15900748 (Version 1)
Quarter: 2019Q1

REPORT INFORMATION
  Report Type: Spontaneous
  Country: FR (occurrence: FR)
  Receive Date: 20190201
  Receipt Date: 20190201
  Transmission Date: 20190417
  Serious: Yes (Hospitalization)
  Sender: FDA-Public Use
  Company Number: FR-JNJFOC-20190139870

PATIENT
  Age: 65 Year
  Sex: Male

DRUGS (6)
  1. DIAZEPAM. [Suspect]
     Active Substance: DIAZEPAM
     Indication: DELIRIUM
     Route: 048
     Dates: start: 20181127, end: 20181201
  2. HALDOL [Suspect]
     Active Substance: HALOPERIDOL
     Indication: DELIRIUM
     Route: 048
     Dates: start: 20181120, end: 20181201
  3. RISPERIDONE. [Suspect]
     Active Substance: RISPERIDONE
     Indication: DELIRIUM
     Route: 048
     Dates: start: 20181028, end: 20181116
  4. LOXAPAC [Suspect]
     Active Substance: LOXAPINE
     Indication: DELIRIUM
     Route: 048
     Dates: start: 20181102, end: 20181119
  5. PAROXETINE. [Concomitant]
     Active Substance: PAROXETINE
     Indication: DEPRESSION
     Route: 048
     Dates: start: 20181120, end: 20181129
  6. SERESTA [Suspect]
     Active Substance: OXAZEPAM
     Indication: DELIRIUM
     Route: 048
     Dates: start: 20181028, end: 20181127

REACTIONS (2)
  - General physical health deterioration [Recovering/Resolving]
  - Choking [Recovered/Resolved]

NARRATIVE: CASE EVENT DATE: 201811
